FAERS Safety Report 6156858-1 (Version None)
Quarter: 2009Q2

REPORT INFORMATION
  Report Type: 
  Country: None (occurrence: None)
  Receive Date: 20090413
  Receipt Date: 20090413
  Transmission Date: 20091009
  Serious: Yes (Other)
  Sender: FDA-Public Use
  Company Number: None

PATIENT
  Age: 52 Year
  Sex: Female
  Weight: 71.2147 kg

DRUGS (1)
  1. CYMBALTA [Suspect]
     Indication: CONNECTIVE TISSUE DISORDER
     Dosage: 60 MG 1 PER DAY
     Dates: start: 20081021, end: 20090321

REACTIONS (19)
  - ABDOMINAL PAIN [None]
  - AGEUSIA [None]
  - ANOREXIA [None]
  - CONSTIPATION [None]
  - DIARRHOEA [None]
  - DIZZINESS [None]
  - FATIGUE [None]
  - FEELING ABNORMAL [None]
  - GASTROOESOPHAGEAL REFLUX DISEASE [None]
  - GRIP STRENGTH DECREASED [None]
  - INCREASED UPPER AIRWAY SECRETION [None]
  - INSOMNIA [None]
  - LIVER FUNCTION TEST ABNORMAL [None]
  - NAUSEA [None]
  - NIGHT SWEATS [None]
  - PARAESTHESIA [None]
  - POLLAKIURIA [None]
  - RHINITIS ALLERGIC [None]
  - WEIGHT DECREASED [None]
